FAERS Safety Report 5228450-4 (Version None)
Quarter: 2007Q1

REPORT INFORMATION
  Report Type: 
  Country: None (occurrence: None)
  Receive Date: 20070131
  Receipt Date: 20070118
  Transmission Date: 20070707
  Serious: Yes (Disabling)
  Sender: FDA-Public Use
  Company Number: 2007EU000156

PATIENT
  Age: 63 Year
  Sex: Female

DRUGS (6)
  1. VESICARE [Suspect]
     Indication: POLLAKIURIA
     Dosage: 5 MG, UID/QD, ORAL
     Route: 048
     Dates: start: 20060503, end: 20061201
  2. CETIRIZINE (CETIRIZINE) [Concomitant]
  3. CODEINE PHOSPHATE (CODEINE PHOSPHATE HEMIHYDRATE) [Concomitant]
  4. COLOFAC (MEBEVERINE HYDROCHLORIDE) [Concomitant]
  5. IBUPROFEN [Concomitant]
  6. PREMARIN [Concomitant]

REACTIONS (2)
  - DIARRHOEA [None]
  - FAECAL INCONTINENCE [None]
